FAERS Safety Report 7447526-4 (Version None)
Quarter: 2011Q2

REPORT INFORMATION
  Report Type: 
  Country: None (occurrence: None)
  Receive Date: 20110429
  Receipt Date: 20110203
  Transmission Date: 20111010
  Serious: No
  Sender: FDA-Public Use
  Company Number: US-ASTRAZENECA-2011SE06706

PATIENT
  Age: 66 Year
  Sex: Female

DRUGS (1)
  1. NEXIUM [Suspect]
     Route: 048

REACTIONS (4)
  - GASTRIC ULCER HAEMORRHAGE [None]
  - DRUG DOSE OMISSION [None]
  - ANAEMIA [None]
  - GASTRIC ULCER [None]
